FAERS Safety Report 4427619-6 (Version None)
Quarter: 2004Q3

REPORT INFORMATION
  Report Type: 
  Country: None (occurrence: None)
  Receive Date: 20040816
  Receipt Date: 20040816
  Transmission Date: 20050211
  Serious: Yes (Other)
  Sender: FDA-Public Use
  Company Number: None

PATIENT
  Sex: Female
  Weight: 56.6996 kg

DRUGS (3)
  1. LAMOTRIGINE [Suspect]
     Indication: BIPOLAR II DISORDER
     Dosage: 400 MG PO QD
     Route: 048
     Dates: start: 20040503, end: 20040805
  2. LAMOTRIGINE [Suspect]
     Indication: DEPRESSION
     Dosage: 400 MG PO QD
     Route: 048
     Dates: start: 20040503, end: 20040805
  3. LORAZEPAN [Concomitant]

REACTIONS (1)
  - PREGNANCY [None]
